FAERS Safety Report 4475756-2 (Version None)
Quarter: 2004Q4

REPORT INFORMATION
  Report Type: 
  Country: None (occurrence: None)
  Receive Date: 20041015
  Receipt Date: 20040804
  Transmission Date: 20050328
  Serious: Yes (Other)
  Sender: FDA-Public Use
  Company Number: US-GLAXOSMITHKLINE-A0521383A

PATIENT
  Age: 89 Year
  Sex: Female
  Weight: 52.3 kg

DRUGS (2)
  1. AUGMENTIN XR [Suspect]
     Indication: CELLULITIS
     Dosage: 1000MG SINGLE DOSE
     Route: 048
     Dates: start: 20040501
  2. AMOXICILLIN [Concomitant]

REACTIONS (1)
  - LOSS OF CONSCIOUSNESS [None]
